FAERS Safety Report 7569788-5 (Version None)
Quarter: 2011Q2

REPORT INFORMATION
  Report Type: 
  Country: None (occurrence: None)
  Receive Date: 20110621
  Receipt Date: 20110621
  Transmission Date: 20111010
  Serious: Yes (Other)
  Sender: FDA-Public Use
  Company Number: None

PATIENT
  Age: 68 Year
  Sex: Female
  Weight: 68.0396 kg

DRUGS (1)
  1. CODEINE PHOSPHATE AND ACETAMINOPHEN [Suspect]
     Indication: MIGRAINE
     Dosage: 30/300GM 1Q4HRS PRN PAIN
     Dates: start: 20070101

REACTIONS (3)
  - BLOOD PRESSURE INCREASED [None]
  - VOMITING [None]
  - ABDOMINAL DISCOMFORT [None]
